FAERS Safety Report 9097400 (Version 1)
Quarter: 2013Q1

REPORT INFORMATION
  Report Type: Spontaneous
  Country: IN (occurrence: IN)
  Receive Date: 20130212
  Receipt Date: 20130212
  Transmission Date: 20140127
  Serious: Yes (Other)
  Sender: FDA-Public Use
  Company Number: IN-ELI_LILLY_AND_COMPANY-IN201204004479

PATIENT
  Age: 25 Year
  Sex: Female

DRUGS (1)
  1. HUMALOG 50% LISPRO, 50% NPL [Suspect]
     Indication: BLOOD GLUCOSE INCREASED
     Dosage: UNK
     Dates: start: 20120412

REACTIONS (1)
  - Exposure during pregnancy [Recovered/Resolved]
